FAERS Safety Report 4911569-2 (Version None)
Quarter: 2006Q1

REPORT INFORMATION
  Report Type: 
  Country: None (occurrence: None)
  Receive Date: 20060213
  Receipt Date: 20060131
  Transmission Date: 20060701
  Serious: Yes (Other)
  Sender: FDA-Public Use
  Company Number: US-2005-018101

PATIENT
  Age: 26 Year
  Sex: Female
  Weight: 95.2 kg

DRUGS (1)
  1. MIRENA [Suspect]
     Indication: CONTRACEPTION
     Dosage: 20 UG/DAY, CONT, INTRA-UTERINE
     Route: 015
     Dates: start: 20040701, end: 20050201

REACTIONS (4)
  - CHORIOAMNIONITIS [None]
  - DRUG EXPOSURE DURING PREGNANCY [None]
  - ENDOMETRITIS DECIDUAL [None]
  - PREGNANCY WITH CONTRACEPTIVE DEVICE [None]
